FAERS Safety Report 8509728-5 (Version None)
Quarter: 2012Q3

REPORT INFORMATION
  Report Type: 
  Country: None (occurrence: None)
  Receive Date: 20120713
  Receipt Date: 20120706
  Transmission Date: 20120928
  Serious: Yes (Hospitalization)
  Sender: FDA-Public Use
  Company Number: GB-B.I. PHARMACEUTICALS,INC./RIDGEFIELD-2012-BP-14092YA

PATIENT
  Age: 74 Year
  Sex: Male

DRUGS (9)
  1. MEDICATION NOT FURTHER SPECIFIED [Suspect]
     Dosage: 5 MG
     Dates: start: 19970107
  2. CIPROFLOXACIN [Concomitant]
     Dosage: 50 MG
     Route: 048
     Dates: start: 20120330, end: 20120406
  3. AMIODARONE HCL [Suspect]
     Dosage: 100 MG
     Route: 048
     Dates: start: 19920305
  4. CISPLATIN [Suspect]
     Dosage: 140 MG
     Route: 042
     Dates: start: 20120404, end: 20120404
  5. GEMCITABINE [Concomitant]
     Dosage: 2000 MG
     Route: 042
     Dates: start: 20120404, end: 20120404
  6. NITROFURANTOIN [Concomitant]
     Dosage: 100 MG
     Dates: start: 20120401, end: 20120408
  7. TAMSULOSIN HCL [Suspect]
     Dosage: 400 MG
     Route: 048
     Dates: start: 20110404, end: 20120423
  8. SUNITINB (SUNTINIB) [Suspect]
     Indication: TRANSITIONAL CELL CARCINOMA
     Dosage: 25 MG
     Route: 065
     Dates: start: 20120404, end: 20120408
  9. MEDICATION NOT FURTHER SPECIFIED [Concomitant]
     Dosage: 100 MG
     Route: 048
     Dates: start: 20120401, end: 20120408

REACTIONS (5)
  - HYPOTENSION [None]
  - BLOOD SODIUM DECREASED [None]
  - MALAISE [None]
  - DIZZINESS [None]
  - HAEMATURIA [None]
